FAERS Safety Report 11150538 (Version 2)
Quarter: 2015Q2

REPORT INFORMATION
  Report Type: Spontaneous
  Country: US (occurrence: US)
  Receive Date: 20150601
  Receipt Date: 20150617
  Transmission Date: 20150821
  Serious: Yes (Hospitalization, Other)
  Sender: FDA-Public Use
  Company Number: US-ROCHE-1585325

PATIENT
  Sex: Male
  Weight: 78.54 kg

DRUGS (4)
  1. CYCLOSPORINE. [Concomitant]
     Active Substance: CYCLOSPORINE
  2. RITUXAN [Suspect]
     Active Substance: RITUXIMAB
     Indication: LYMPHOCYTIC LYMPHOMA
  3. BENDAMUSTINE [Concomitant]
     Active Substance: BENDAMUSTINE
     Route: 042
     Dates: start: 20140909, end: 20150123
  4. RITUXAN [Suspect]
     Active Substance: RITUXIMAB
     Indication: BLOOD IMMUNOGLOBULIN M INCREASED
     Dosage: FOR 6 CYCLES
     Route: 042
     Dates: start: 20140908, end: 20150127

REACTIONS (6)
  - Haemolytic anaemia [Recovered/Resolved]
  - Candida infection [Not Recovered/Not Resolved]
  - Weight decreased [Unknown]
  - White blood cell count decreased [Unknown]
  - Stomatitis [Not Recovered/Not Resolved]
  - Dysphagia [Unknown]
